FAERS Safety Report 19901557 (Version 1)
Quarter: 2021Q3

REPORT INFORMATION
  Report Type: Report from Study
  Country: PK (occurrence: PK)
  Receive Date: 20210929
  Receipt Date: 20210929
  Transmission Date: 20211014
  Serious: Yes (Death)
  Sender: FDA-Public Use
  Company Number: NVSC2021PK221334

PATIENT
  Age: 15 Year
  Sex: Female
  Weight: 40 kg

DRUGS (1)
  1. GLIVEC [Suspect]
     Active Substance: IMATINIB MESYLATE
     Indication: ACUTE LYMPHOCYTIC LEUKAEMIA
     Dosage: 100 MG, TID (3X OD)
     Route: 048
     Dates: start: 20210318

REACTIONS (1)
  - Death [Fatal]

NARRATIVE: CASE EVENT DATE: 20210907
